FAERS Safety Report 7366173-6 (Version None)
Quarter: 2011Q1

REPORT INFORMATION
  Report Type: 
  Country: None (occurrence: None)
  Receive Date: 20110317
  Receipt Date: 20110317
  Transmission Date: 20110831
  Serious: Yes (Life-Threatening, Hospitalization)
  Sender: FDA-Public Use
  Company Number: None

PATIENT
  Age: 53 Year
  Sex: Male
  Weight: 81.6475 kg

DRUGS (1)
  1. PSS SELECT ALCOHOL PAD TRIAD [Suspect]
     Indication: SPLINTER
     Dosage: THREE PADS THREE TIMES A DAY CUTANEOUS
     Route: 003
     Dates: start: 20101221, end: 20110101

REACTIONS (3)
  - CARBUNCLE [None]
  - APPLICATION SITE INFECTION [None]
  - PRODUCT QUALITY ISSUE [None]
